FAERS Safety Report 8207383-5 (Version None)
Quarter: 2012Q1

REPORT INFORMATION
  Report Type: 
  Country: None (occurrence: None)
  Receive Date: 20120312
  Receipt Date: 20120228
  Transmission Date: 20120608
  Serious: Yes (Other)
  Sender: FDA-Public Use
  Company Number: 2012NA000024

PATIENT
  Age: 1 Day
  Sex: Male
  Weight: 1.8 kg

DRUGS (1)
  1. DICLOFENAC SODIUM [Suspect]

REACTIONS (6)
  - OLIGOHYDRAMNIOS [None]
  - METABOLIC ACIDOSIS [None]
  - MATERNAL DRUGS AFFECTING FOETUS [None]
  - NEONATAL RESPIRATORY DISTRESS SYNDROME [None]
  - RENAL IMPAIRMENT NEONATAL [None]
  - HYPERKALAEMIA [None]
